FAERS Safety Report 10744190 (Version 1)
Quarter: 2015Q1

REPORT INFORMATION
  Report Type: Spontaneous
  Country: FR (occurrence: None)
  Receive Date: 20150126
  Receipt Date: 20150126
  Transmission Date: 20150721
  Serious: Yes (Other)
  Sender: FDA-Public Use
  Company Number: AXC-2015-000029

PATIENT
  Age: 42 Year
  Sex: Female

DRUGS (1)
  1. NITROGLYCERIN (NITROGLYCERIN) RECTAL OINTMENT [Suspect]
     Active Substance: NITROGLYCERIN
     Indication: ANAL FISSURE
     Dosage: UNK DF, SINGLE
     Route: 054
     Dates: start: 20141203, end: 20141203

REACTIONS (4)
  - Palpitations [None]
  - Tachycardia [None]
  - Headache [None]
  - Dizziness [None]

NARRATIVE: CASE EVENT DATE: 20141203
